FAERS Safety Report 7785029-8 (Version None)
Quarter: 2011Q3

REPORT INFORMATION
  Report Type: 
  Country: None (occurrence: None)
  Receive Date: 20110929
  Receipt Date: 20110919
  Transmission Date: 20111222
  Serious: Yes (Hospitalization, Other)
  Sender: FDA-Public Use
  Company Number: NL-AMGEN-NLDSP2011049047

PATIENT
  Age: 79 Year
  Sex: Female

DRUGS (2)
  1. ENBREL [Suspect]
     Indication: RHEUMATOID ARTHRITIS
     Dosage: 50 MG, WEEKLY
  2. ARCOXIA [Concomitant]
     Dosage: UNK

REACTIONS (3)
  - IMPAIRED HEALING [None]
  - HIP SURGERY [None]
  - RHEUMATOID ARTHRITIS [None]
